FAERS Safety Report 10615811 (Version 1)
Quarter: 2014Q4

REPORT INFORMATION
  Report Type: Spontaneous
  Country: US (occurrence: None)
  Receive Date: 20141125
  Receipt Date: 20141125
  Transmission Date: 20150529
  Serious: Yes (Hospitalization)
  Sender: FDA-Public Use
  Company Number: None

PATIENT
  Age: 41 Year
  Sex: Male
  Weight: 145.3 kg

DRUGS (1)
  1. IOPROMIDE [Suspect]
     Active Substance: IOPROMIDE
     Indication: ANGIOGRAM
     Route: 042
     Dates: start: 20141110, end: 20141113

REACTIONS (5)
  - Acute kidney injury [None]
  - Dizziness [None]
  - Diplopia [None]
  - Cholangitis [None]
  - Hepatic enzyme increased [None]

NARRATIVE: CASE EVENT DATE: 20141113
